FAERS Safety Report 26187088 (Version 1)
Quarter: 2025Q4

REPORT INFORMATION
  Report Type: Spontaneous
  Country: AU (occurrence: AU)
  Receive Date: 20251222
  Receipt Date: 20251222
  Transmission Date: 20260118
  Serious: Yes (Other)
  Sender: MYLAN
  Company Number: AU-MYLANLABS-2025M1108567

PATIENT
  Sex: Male
  Weight: 92 kg

DRUGS (8)
  1. CLOZARIL [Suspect]
     Active Substance: CLOZAPINE
     Indication: Schizophrenia
     Dosage: 250 MILLIGRAM, PM (NOCTE)
     Route: 061
     Dates: start: 20220511
  2. ARIPIPRAZOLE [Concomitant]
     Active Substance: ARIPIPRAZOLE
     Dosage: 10 MILLIGRAM, AM (MORNING)
     Route: 061
  3. ATORVASTATIN [Concomitant]
     Active Substance: ATORVASTATIN
     Dosage: 80 MILLIGRAM, AM (MORNING)
     Route: 061
  4. FENOFIBRATE [Concomitant]
     Active Substance: FENOFIBRATE
     Dosage: 145 MILLIGRAM, AM (MORNING)
     Route: 061
  5. METOPROLOL [Concomitant]
     Active Substance: METOPROLOL
     Dosage: 25 MILLIGRAM, BID
     Route: 061
  6. OMEGA-3 FATTY ACIDS [Concomitant]
     Active Substance: OMEGA-3 FATTY ACIDS
     Dosage: 2 DOSAGE FORM, BID
     Route: 061
  7. VALPROATE [Concomitant]
     Active Substance: VALPROIC ACID
     Dosage: 100 MILLIGRAM, BID (TWICE DAILY)
     Route: 061
  8. VALPROATE [Concomitant]
     Active Substance: VALPROIC ACID
     Dosage: 200 MILLIGRAM, BID (TWICE DAILY)
     Route: 061

REACTIONS (3)
  - Generalised tonic-clonic seizure [Unknown]
  - Hypercholesterolaemia [Unknown]
  - Product dose omission issue [Unknown]
